FAERS Safety Report 9008061 (Version 1)
Quarter: 2012Q4

REPORT INFORMATION
  Report Type: Spontaneous
  Country: HK (occurrence: None)
  Receive Date: 20121214
  Receipt Date: 20121214
  Transmission Date: 20130627
  Serious: Yes (Other)
  Sender: FDA-Public Use
  Company Number: 1539889

PATIENT
  Age: 9 Year
  Sex: Male

DRUGS (10)
  1. METHOTREXATE [Suspect]
     Indication: GRAFT VERSUS HOST DISEASE
     Dosage: Not Reported,  UNKNOWN,  UNKNOWN
UNKNOWN
  2. BUSULFAN [Suspect]
     Indication: BONE MARROW CONDITIONING REGIMEN
     Dosage: Not Reported, UNKNOWN, UNKNOWN
UNKNOWN
  3. CYCLOPHOSPHAMIDE [Suspect]
     Indication: BONE MARROW CONDITIONING REGIMEN
     Dosage: Not Reported, UNKNOWN, UNKNOWN
UNKNOWN
  4. ANTITHYMOCYTE IMMUNOGLOBULIN [Suspect]
     Indication: PROPHYLAXIS AGAINST GRAFT VERSUS HOST DISEASE
     Dosage: Not Reported, UNKNOWN, UNKNOWN
UNKNOWN
  5. CYCLOSPORIN A [Suspect]
     Indication: PROPHYLAXIS AGAINST GRAFT VERSUS HOST DISEASE
     Dosage: Not Reported, UNKNOWN, UNKNOWN
UNKNOWN
  6. CORTICOSTEROIDS [Suspect]
     Indication: IMMUNOSUPPRESSION
     Dosage: Not reported, UNKNOWN, UNKNOWN
UNKNOWN
  7. MYCOPHENOLATE MOFETIL [Suspect]
     Indication: IMMUNOSUPPRESSION
     Dosage: Not Reported, UNKNOWN, UNKNOWN
UNKNOWN
  8. FLUCONAZOLE [Concomitant]
  9. (ACYCLOVIR  /00587301/ ) [Concomitant]
  10. COTRIMOXAZOLE [Concomitant]

REACTIONS (4)
  - Gastroenteritis norovirus [None]
  - Acute graft versus host disease [None]
  - Chronic graft versus host disease [None]
  - Diarrhoea [None]
